FAERS Safety Report 15528673 (Version 1)
Quarter: 2018Q4

REPORT INFORMATION
  Report Type: Report from Study
  Country: US (occurrence: US)
  Receive Date: 20181018
  Receipt Date: 20181018
  Transmission Date: 20190205
  Serious: No
  Sender: FDA-Public Use
  Company Number: US-AMGEN-USASL2018139969

PATIENT
  Age: 72 Year
  Sex: Male

DRUGS (1)
  1. REPATHA [Suspect]
     Active Substance: EVOLOCUMAB
     Indication: LOW DENSITY LIPOPROTEIN INCREASED
     Dosage: 140 MG, Q2WK
     Route: 065

REACTIONS (6)
  - Tongue erythema [Unknown]
  - Tongue discomfort [Unknown]
  - Lip erythema [Recovered/Resolved]
  - Oral discomfort [Recovered/Resolved]
  - Headache [Recovered/Resolved]
  - Chapped lips [Unknown]

NARRATIVE: CASE EVENT DATE: 20181001
